FAERS Safety Report 16935183 (Version 2)
Quarter: 2019Q4

REPORT INFORMATION
  Report Type: Spontaneous
  Country: US (occurrence: US)
  Receive Date: 20191018
  Receipt Date: 20191204
  Transmission Date: 20200122
  Serious: No
  Sender: FDA-Public Use
  Company Number: US-PFIZER INC-2019254305

PATIENT
  Age: 78 Year
  Sex: Female
  Weight: 74.84 kg

DRUGS (2)
  1. PREMPRO [Suspect]
     Active Substance: ESTROGENS, CONJUGATED\MEDROXYPROGESTERONE ACETATE
     Indication: MENOPAUSAL SYMPTOMS
     Dosage: UNK (STRENGTH: 4.5-1.5 (UNITS NOT PROVIDED))
  2. PREMPRO [Suspect]
     Active Substance: ESTROGENS, CONJUGATED\MEDROXYPROGESTERONE ACETATE
     Indication: HORMONE THERAPY
     Dosage: UNK UNK, 1X/DAY [1 X DAILY 0.45 MG/1.5 MG]
     Dates: start: 20191102

REACTIONS (4)
  - Drug hypersensitivity [Unknown]
  - Cough [Unknown]
  - Sneezing [Unknown]
  - Product prescribing issue [Unknown]

NARRATIVE: CASE EVENT DATE: 20191102
